FAERS Safety Report 4638465-2 (Version None)
Quarter: 2005Q2

REPORT INFORMATION
  Report Type: 
  Country: None (occurrence: None)
  Receive Date: 20050418
  Receipt Date: 20050405
  Transmission Date: 20051028
  Serious: Yes (Hospitalization, Other)
  Sender: FDA-Public Use
  Company Number: 2005034922

PATIENT
  Age: 18 Year
  Sex: Male
  Weight: 64 kg

DRUGS (3)
  1. EPANUTIN                      (PHENYTOIN SODIUM) [Suspect]
     Indication: EPILEPSY
     Dosage: 400 MG (200 MG, 2 IN 1 D), ORAL
     Route: 048
     Dates: start: 20041201, end: 20050201
  2. CARBAMAZEPINE [Concomitant]
  3. QUETIAPINE FUMARATE [Concomitant]

REACTIONS (6)
  - ANTICONVULSANT DRUG LEVEL INCREASED [None]
  - CONFUSIONAL STATE [None]
  - COORDINATION ABNORMAL [None]
  - DRUG TOXICITY [None]
  - DYSPRAXIA [None]
  - GAIT DISTURBANCE [None]
